FAERS Safety Report 24921193 (Version 1)
Quarter: 2025Q1

REPORT INFORMATION
  Report Type: Spontaneous
  Country: US (occurrence: US)
  Receive Date: 20250204
  Receipt Date: 20250204
  Transmission Date: 20250409
  Serious: No
  Sender: PADAGIS
  Company Number: US-PADAGIS-2025PAD00076

PATIENT

DRUGS (20)
  1. CLINDAMYCIN PHOSPHATE [Suspect]
     Active Substance: CLINDAMYCIN PHOSPHATE
     Indication: Benign familial pemphigus
     Route: 061
  2. CLINDAMYCIN PHOSPHATE [Suspect]
     Active Substance: CLINDAMYCIN PHOSPHATE
     Route: 065
  3. CALCIPOTRIENE [Suspect]
     Active Substance: CALCIPOTRIENE
     Indication: Benign familial pemphigus
     Route: 065
  4. CALCIPOTRIENE [Suspect]
     Active Substance: CALCIPOTRIENE
     Route: 065
  5. AZITHROMYCIN [Suspect]
     Active Substance: AZITHROMYCIN
     Indication: Benign familial pemphigus
     Route: 048
  6. CLOBETASOL [Suspect]
     Active Substance: CLOBETASOL
     Indication: Benign familial pemphigus
     Route: 065
  7. CLOBETASOL [Suspect]
     Active Substance: CLOBETASOL
     Route: 065
  8. CLOBETASOL [Suspect]
     Active Substance: CLOBETASOL
     Route: 065
  9. ERYTHROMYCIN [Suspect]
     Active Substance: ERYTHROMYCIN
     Indication: Benign familial pemphigus
     Route: 065
  10. ERYTHROMYCIN [Suspect]
     Active Substance: ERYTHROMYCIN
     Route: 065
  11. ERYTHROMYCIN [Suspect]
     Active Substance: ERYTHROMYCIN
     Route: 065
  12. ERYTHROMYCIN [Suspect]
     Active Substance: ERYTHROMYCIN
     Route: 065
  13. NALTREXONE [Suspect]
     Active Substance: NALTREXONE
     Indication: Benign familial pemphigus
     Route: 048
  14. NALTREXONE [Suspect]
     Active Substance: NALTREXONE
     Route: 065
  15. CHLORHEXIDINE GLUCONATE [Suspect]
     Active Substance: CHLORHEXIDINE GLUCONATE
     Indication: Benign familial pemphigus
     Route: 065
  16. PETROLEUM JELLY [Suspect]
     Active Substance: PETROLATUM
     Indication: Benign familial pemphigus
     Route: 065
  17. MAGNESIUM [Suspect]
     Active Substance: MAGNESIUM
     Indication: Benign familial pemphigus
     Route: 065
  18. TACROLIMUS [Suspect]
     Active Substance: TACROLIMUS
     Indication: Benign familial pemphigus
     Route: 065
  19. TACROLIMUS [Suspect]
     Active Substance: TACROLIMUS
     Route: 065
  20. TACROLIMUS [Suspect]
     Active Substance: TACROLIMUS
     Route: 061

REACTIONS (3)
  - Condition aggravated [Recovering/Resolving]
  - Drug ineffective for unapproved indication [Unknown]
  - Maternal exposure during pregnancy [Unknown]

NARRATIVE: CASE EVENT DATE: 20221019
